FAERS Safety Report 7471746-6 (Version None)
Quarter: 2011Q2

REPORT INFORMATION
  Report Type: 
  Country: None (occurrence: None)
  Receive Date: 20110511
  Receipt Date: 20100318
  Transmission Date: 20111010
  Serious: No
  Sender: FDA-Public Use
  Company Number: A0851666A

PATIENT
  Age: 49 Year
  Sex: Female
  Weight: 69.5 kg

DRUGS (6)
  1. XELODA [Concomitant]
     Dosage: 3TAB TWICE PER DAY
     Route: 048
  2. NAPROXEN (ALEVE) [Concomitant]
     Dosage: 1TAB PER DAY
     Route: 048
  3. LEVOTHYROXINE SODIUM [Concomitant]
     Dosage: 1TAB PER DAY
     Route: 048
  4. TYKERB [Suspect]
     Dosage: 1250MG PER DAY
     Route: 048
     Dates: start: 20100312
  5. PRILOSEC [Concomitant]
     Dosage: 1CAP AT NIGHT
     Route: 048
  6. EFFEXOR [Concomitant]
     Dosage: 1CAP PER DAY
     Route: 048

REACTIONS (5)
  - CHEILITIS [None]
  - NAUSEA [None]
  - SKIN DISORDER [None]
  - DIARRHOEA [None]
  - CHEST DISCOMFORT [None]
